FAERS Safety Report 6607122-5 (Version None)
Quarter: 2010Q1

REPORT INFORMATION
  Report Type: 
  Country: None (occurrence: None)
  Receive Date: 20100212
  Receipt Date: 20100111
  Transmission Date: 20100710
  Serious: Yes (Other)
  Sender: FDA-Public Use
  Company Number: 1000011220

PATIENT
  Age: 47 Year
  Sex: Female

DRUGS (3)
  1. SAVELLA [Suspect]
     Indication: FIBROMYALGIA
     Dosage: 12.5 MG (12.5 MG,1 IN 1 D),ORAL
     Route: 048
     Dates: start: 20091201, end: 20091201
  2. SAVELLA [Suspect]
     Indication: FIBROMYALGIA
     Dosage: 25 MG (12.5 MG,2 IN 1 D),ORAL
     Route: 048
     Dates: start: 20091201, end: 20091201
  3. PLAQUENIL [Concomitant]

REACTIONS (1)
  - SUICIDAL IDEATION [None]
